FAERS Safety Report 10081359 (Version 2)
Quarter: 2014Q2

REPORT INFORMATION
  Report Type: Spontaneous
  Country: JP (occurrence: JP)
  Receive Date: 20140416
  Receipt Date: 20140509
  Transmission Date: 20141212
  Serious: Yes (Hospitalization)
  Sender: FDA-Public Use
  Company Number: JP-BAYER-2014-055115

PATIENT
  Age: 85 Year
  Sex: Male
  Weight: 62 kg

DRUGS (10)
  1. BAYASPIRIN [Suspect]
     Indication: ANGINA UNSTABLE
     Dosage: DAILY DOSE 200 MG
     Route: 048
     Dates: start: 20131212, end: 20131212
  2. BAYASPIRIN [Suspect]
     Indication: PERIPHERAL ARTERIAL OCCLUSIVE DISEASE
     Dosage: DAILY DOSE 100 MG
     Route: 048
     Dates: start: 20131213, end: 20131219
  3. BAYASPIRIN [Suspect]
     Indication: ANGINA UNSTABLE
  4. PLAVIX [Concomitant]
     Dosage: DAILY DOSE 75 MG
     Route: 048
     Dates: start: 20131205
  5. CRESTOR [Concomitant]
     Dosage: DAILY DOSE 2.5 MG
     Route: 048
  6. CRESTOR [Concomitant]
     Dosage: 5 MG, UNK
     Route: 048
  7. NEXIUM [Concomitant]
     Dosage: DAILY DOSE 20 MG
     Route: 048
     Dates: start: 20131205
  8. FLOMOX [Concomitant]
     Dosage: DAILY DOSE 300 MG
     Route: 048
  9. CONIEL [Concomitant]
     Dosage: DAILY DOSE 20 MG
     Route: 048
  10. ARICEPT [Concomitant]
     Dosage: DAILY DOSE 5 MG
     Route: 048

REACTIONS (1)
  - Pyrexia [Recovered/Resolved]
